FAERS Safety Report 6385522-9 (Version None)
Quarter: 2009Q4

REPORT INFORMATION
  Report Type: 
  Country: None (occurrence: None)
  Receive Date: 20091002
  Receipt Date: 20080919
  Transmission Date: 20100525
  Serious: No
  Sender: FDA-Public Use
  Company Number: US-ASTRAZENECA-2008UW19630

PATIENT
  Age: 73 Year
  Sex: Female
  Weight: 79.4 kg

DRUGS (2)
  1. ARIMIDEX [Suspect]
     Indication: BREAST CANCER
     Route: 048
     Dates: start: 20050901
  2. HUMULIN 70/30 [Concomitant]

REACTIONS (1)
  - EYE DISORDER [None]
